FAERS Safety Report 4317879-4 (Version None)
Quarter: 2004Q1

REPORT INFORMATION
  Report Type: 
  Country: None (occurrence: None)
  Receive Date: 20040316
  Receipt Date: 20030926
  Transmission Date: 20041129
  Serious: Yes (Hospitalization, Disabling)
  Sender: FDA-Public Use
  Company Number: WAES 0309USA03139

PATIENT
  Age: 41 Year
  Sex: Female

DRUGS (13)
  1. DARVOCET-N 100 [Concomitant]
  2. WELLBUTRIN [Concomitant]
  3. CARISOPRODOL [Concomitant]
  4. DIFLUNISAL [Concomitant]
  5. PREMARIN [Concomitant]
  6. ESTRATEST [Concomitant]
  7. ALLEGRA [Concomitant]
  8. REBETRON [Concomitant]
     Dates: start: 19991020, end: 19991001
  9. NORTRIPTYLINE [Concomitant]
  10. ACCUPRIL [Concomitant]
  11. REBETOL [Concomitant]
  12. VIOXX [Suspect]
     Route: 048
     Dates: start: 19990601, end: 19991001
  13. ULTRAM [Concomitant]

REACTIONS (27)
  - ABDOMINAL PAIN UPPER [None]
  - BLOOD CHOLESTEROL INCREASED [None]
  - BLOOD PRESSURE SYSTOLIC INCREASED [None]
  - CAROTID ARTERY OCCLUSION [None]
  - CEREBROVASCULAR ACCIDENT [None]
  - CHEST PAIN [None]
  - CONSTIPATION [None]
  - DEPRESSION [None]
  - FAECAL OCCULT BLOOD POSITIVE [None]
  - FALL [None]
  - GAIT DISTURBANCE [None]
  - GRIP STRENGTH DECREASED [None]
  - HEMIPLEGIA [None]
  - HYPERLIPIDAEMIA [None]
  - ISCHAEMIC STROKE [None]
  - LOW DENSITY LIPOPROTEIN INCREASED [None]
  - LUMBAR VERTEBRAL FRACTURE [None]
  - MELAENA [None]
  - MICROCYTIC ANAEMIA [None]
  - MYALGIA [None]
  - ORTHOSTATIC HYPOTENSION [None]
  - PAIN IN EXTREMITY [None]
  - PULMONARY CONGESTION [None]
  - SOMNOLENCE [None]
  - SPINAL COMPRESSION FRACTURE [None]
  - URINARY INCONTINENCE [None]
  - VENTRICULAR HYPERTROPHY [None]
